FAERS Safety Report 10257615 (Version 2)
Quarter: 2014Q2

REPORT INFORMATION
  Report Type: Other
  Country: GB (occurrence: GB)
  Receive Date: 20140625
  Receipt Date: 20140625
  Transmission Date: 20141212
  Serious: Yes (Hospitalization, Other)
  Sender: FDA-Public Use
  Company Number: GB-GLENMARK GENERICS INC.-GGEL20110901027

PATIENT
  Sex: 0

DRUGS (7)
  1. TOPIRAMATE 50MG FILM-COATED TABLETS [Suspect]
     Indication: EPILEPSY
     Dosage: 250 MG, UNK
  2. OXCARBAZEPINE [Suspect]
     Indication: EPILEPSY
  3. OXCARBAZEPINE [Suspect]
     Dosage: 1200 MG
  4. OXCARBAZEPINE [Suspect]
     Dosage: 300 MILLIGRAM
  5. LACOSAMIDE [Suspect]
     Indication: EPILEPSY
     Dosage: 100 MILLIGRAM
  6. LACOSAMIDE [Suspect]
     Dosage: 200 MG, UNK
  7. PHENYTOIN [Suspect]
     Indication: EPILEPSY

REACTIONS (6)
  - Anticonvulsant drug level decreased [Unknown]
  - Neurotoxicity [Recovering/Resolving]
  - Drug interaction [Unknown]
  - Convulsion [Recovering/Resolving]
  - Balance disorder [Recovering/Resolving]
  - Diplopia [Recovering/Resolving]
